FAERS Safety Report 5291082-6 (Version None)
Quarter: 2007Q2

REPORT INFORMATION
  Report Type: 
  Country: None (occurrence: None)
  Receive Date: 20070402
  Receipt Date: 20070326
  Transmission Date: 20071010
  Serious: Yes (Hospitalization)
  Sender: FDA-Public Use
  Company Number: 238923

PATIENT
  Age: 14 Year
  Sex: Male

DRUGS (4)
  1. XOLAIR [Suspect]
     Indication: ASTHMA
     Dosage: UNK, UNK, SUBCUTANEOUS
     Route: 058
     Dates: start: 20060101
  2. SULTANOL (ALBUTEROL/ALBUTEROL SULFATE) [Concomitant]
  3. SYMBICORT [Concomitant]
  4. PREDNISOLONE [Concomitant]

REACTIONS (2)
  - BRONCHIAL HYPERREACTIVITY [None]
  - EXERCISE TOLERANCE DECREASED [None]
